FAERS Safety Report 7531917-7 (Version None)
Quarter: 2011Q2

REPORT INFORMATION
  Report Type: 
  Country: None (occurrence: None)
  Receive Date: 20110601
  Receipt Date: 20110519
  Transmission Date: 20111010
  Serious: Yes (Hospitalization)
  Sender: FDA-Public Use
  Company Number: ATE-11-01

PATIENT
  Age: 65 Year
  Sex: Female

DRUGS (11)
  1. ATENOLOL [Suspect]
     Indication: HYPERTENSION
     Dosage: 25 MG/DAY
  2. MINOXIDIL [Concomitant]
  3. FOSINOPRIL SODIUM [Concomitant]
  4. AMLODIPINE [Concomitant]
  5. CLOPIDOGREL [Concomitant]
  6. OTHER ANTIHYPERTENSIVES [Concomitant]
  7. FUROSEMIDE [Concomitant]
  8. RIVASTIGMINE [Concomitant]
  9. LEVETIRACETAM [Concomitant]
  10. ASPIRIN [Concomitant]
  11. ESCITALOPRAM [Concomitant]

REACTIONS (7)
  - FALL [None]
  - SINUS ARREST [None]
  - UNRESPONSIVE TO STIMULI [None]
  - PRESYNCOPE [None]
  - SYNCOPE [None]
  - TREATMENT NONCOMPLIANCE [None]
  - BRADYCARDIA [None]
